FAERS Safety Report 5623495-4 (Version None)
Quarter: 2008Q1

REPORT INFORMATION
  Report Type: 
  Country: None (occurrence: None)
  Receive Date: 20080212
  Receipt Date: 20080207
  Transmission Date: 20080703
  Serious: Yes (Disabling)
  Sender: FDA-Public Use
  Company Number: US-ALLERGAN-0801504US

PATIENT
  Sex: Female

DRUGS (2)
  1. BOTOX [Suspect]
     Indication: MUSCLE SPASTICITY
     Dosage: 800 UNITS, SINGLE
     Route: 030
     Dates: start: 20080129, end: 20080129
  2. BOTOX [Suspect]
     Indication: UPPER MOTOR NEURONE LESION
     Dosage: 500 UNITS, SINGLE
     Route: 030
     Dates: start: 20071101, end: 20071101

REACTIONS (7)
  - ASTHENIA [None]
  - BALANCE DISORDER [None]
  - DYSSTASIA [None]
  - GAIT DISTURBANCE [None]
  - LOWER LIMB DEFORMITY [None]
  - MUSCULAR WEAKNESS [None]
  - OVERDOSE [None]
